FAERS Safety Report 24011288 (Version 1)
Quarter: 2024Q2

REPORT INFORMATION
  Report Type: Spontaneous
  Country: US (occurrence: None)
  Receive Date: 20240625
  Receipt Date: 20240625
  Transmission Date: 20240716
  Serious: Yes (Disabling, Other)
  Sender: FDA-Public Use
  Company Number: None

PATIENT
  Age: 37 Year
  Sex: Female
  Weight: 63 kg

DRUGS (3)
  1. MIRENA [Suspect]
     Active Substance: LEVONORGESTREL
     Indication: Contraception
     Dosage: OTHER ROUTE : INTRAUTERINE;?
     Route: 050
     Dates: start: 20240126
  2. ALEVE [Concomitant]
     Active Substance: NAPROXEN SODIUM
  3. VITAMINS [Concomitant]
     Active Substance: VITAMINS

REACTIONS (13)
  - Complication of device insertion [None]
  - Procedural pain [None]
  - Syncope [None]
  - Fall [None]
  - Injury [None]
  - Head injury [None]
  - Tremor [None]
  - Urinary incontinence [None]
  - Blood pressure systolic decreased [None]
  - Post concussion syndrome [None]
  - Intervertebral disc disorder [None]
  - Condition aggravated [None]
  - Mental disorder [None]

NARRATIVE: CASE EVENT DATE: 20240126
